FAERS Safety Report 18420539 (Version 1)
Quarter: 2020Q4

REPORT INFORMATION
  Report Type: Spontaneous
  Country: RU (occurrence: RU)
  Receive Date: 20201023
  Receipt Date: 20201023
  Transmission Date: 20210114
  Serious: Yes (Life-Threatening)
  Sender: FDA-Public Use
  Company Number: NVSC2020RU284114

PATIENT
  Age: 47 Year
  Sex: Male
  Weight: 88 kg

DRUGS (1)
  1. ANAFRANIL [Suspect]
     Active Substance: CLOMIPRAMINE HYDROCHLORIDE
     Indication: ASTHENIA
     Dosage: 25 MG, QD
     Route: 048
     Dates: start: 20200923, end: 20200923

REACTIONS (4)
  - Asthenia [Recovering/Resolving]
  - Fear [Recovering/Resolving]
  - Tremor [Recovering/Resolving]
  - Dry mouth [Recovering/Resolving]

NARRATIVE: CASE EVENT DATE: 20200923
